APPROVED DRUG PRODUCT: PHRENILIN
Active Ingredient: ACETAMINOPHEN; BUTALBITAL
Strength: 325MG;50MG **Federal Register determination that product was not discontinued or withdrawn for safety or effectiveness reasons**
Dosage Form/Route: TABLET;ORAL
Application: A087811 | Product #001
Applicant: VALEANT PHARMACEUTICALS INTERNATIONAL
Approved: Jun 19, 1985 | RLD: Yes | RS: No | Type: DISCN